FAERS Safety Report 22349592 (Version 2)
Quarter: 2023Q2

REPORT INFORMATION
  Report Type: Spontaneous
  Country: JP (occurrence: JP)
  Receive Date: 20230522
  Receipt Date: 20230616
  Transmission Date: 20230722
  Serious: Yes (Other)
  Sender: FDA-Public Use
  Company Number: JP-OTSUKA-2023_012931AA

PATIENT
  Age: 5 Month
  Sex: Female

DRUGS (4)
  1. BUSULFEX [Suspect]
     Active Substance: BUSULFAN
     Indication: Cord blood transplant therapy
     Dosage: 8.1 MG X 4/DAY
     Route: 041
  2. ETOPOSIDE [Suspect]
     Active Substance: ETOPOSIDE
     Indication: Cord blood transplant therapy
     Dosage: 60 MG/KG
     Route: 065
  3. CYCLOPHOSPHAMIDE [Suspect]
     Active Substance: CYCLOPHOSPHAMIDE
     Indication: Cord blood transplant therapy
     Dosage: 120 MG/KG
     Route: 065
  4. TACROLIMUS [Suspect]
     Active Substance: TACROLIMUS
     Indication: Prophylaxis against graft versus host disease
     Dosage: UNK
     Route: 065

REACTIONS (2)
  - Hypothyroidism [Unknown]
  - Hypogonadism [Unknown]
